FAERS Safety Report 13434854 (Version 1)
Quarter: 2017Q2

REPORT INFORMATION
  Report Type: Spontaneous
  Country: PT (occurrence: PT)
  Receive Date: 20170413
  Receipt Date: 20170413
  Transmission Date: 20170830
  Serious: Yes (Hospitalization)
  Sender: FDA-Public Use
  Company Number: PT-B.I. PHARMACEUTICALS,INC./RIDGEFIELD-2017-BI-020382

PATIENT
  Sex: Female

DRUGS (3)
  1. TRAJENTA [Suspect]
     Active Substance: LINAGLIPTIN
     Indication: PRODUCT USED FOR UNKNOWN INDICATION
     Route: 065
  2. INSULIN [Concomitant]
     Active Substance: INSULIN NOS
     Indication: PRODUCT USED FOR UNKNOWN INDICATION
     Route: 065
  3. TRAJENTA [Suspect]
     Active Substance: LINAGLIPTIN
     Route: 065

REACTIONS (3)
  - Diabetic metabolic decompensation [Unknown]
  - Hyperglycaemia [Unknown]
  - Inappropriate schedule of drug administration [Unknown]
